FAERS Safety Report 21134638 (Version 1)
Quarter: 2022Q3

REPORT INFORMATION
  Report Type: Report from Study
  Country: CO (occurrence: CO)
  Receive Date: 20220727
  Receipt Date: 20220727
  Transmission Date: 20221027
  Serious: Yes (Hospitalization, Other)
  Sender: FDA-Public Use
  Company Number: CO-ABBVIE-22K-036-4481519-00

PATIENT
  Age: 32 Year
  Sex: Female
  Weight: 48 kg

DRUGS (2)
  1. ZEMPLAR [Suspect]
     Active Substance: PARICALCITOL
     Indication: Chronic kidney disease
     Dosage: POST-DIALYSIS
     Route: 042
     Dates: start: 20190118, end: 20220630
  2. ZEMPLAR [Suspect]
     Active Substance: PARICALCITOL
     Indication: Hyperparathyroidism secondary

REACTIONS (4)
  - Arteriovenous fistula thrombosis [Recovering/Resolving]
  - Arteriovenous graft [Recovering/Resolving]
  - Vascular graft complication [Recovering/Resolving]
  - Vascular graft complication [Recovering/Resolving]

NARRATIVE: CASE EVENT DATE: 20220601
